FAERS Safety Report 25506906 (Version 1)
Quarter: 2025Q3

REPORT INFORMATION
  Report Type: Spontaneous
  Country: US (occurrence: US)
  Receive Date: 20250702
  Receipt Date: 20250702
  Transmission Date: 20251021
  Serious: No
  Sender: RADIUS PHARM
  Company Number: US-RADIUS HEALTH INC.-US-RADIUS-25047372

PATIENT
  Age: 60 Year
  Sex: Female
  Weight: 81.633 kg

DRUGS (1)
  1. TYMLOS [Suspect]
     Active Substance: ABALOPARATIDE
     Indication: Senile osteoporosis
     Dosage: 80 MICROGRAM DAILY
     Route: 058

REACTIONS (7)
  - Gait disturbance [Recovering/Resolving]
  - Hypoglycaemia [Unknown]
  - Weight increased [Unknown]
  - Burning sensation [Unknown]
  - Contusion [Unknown]
  - Fatigue [Unknown]
  - Arthralgia [Unknown]

NARRATIVE: CASE EVENT DATE: 20250417
